FAERS Safety Report 13279153 (Version 1)
Quarter: 2017Q1

REPORT INFORMATION
  Report Type: Report from Study
  Country: US (occurrence: US)
  Receive Date: 20170228
  Receipt Date: 20170228
  Transmission Date: 20170428
  Serious: No
  Sender: FDA-Public Use
  Company Number: US-AMAG PHARMACEUTICALS, INC.-AMAG201600374

PATIENT

DRUGS (3)
  1. VITAMIN D [Concomitant]
     Active Substance: CHOLECALCIFEROL
     Dosage: 1 TABS, QD
     Dates: start: 20151218
  2. MAKENA [Suspect]
     Active Substance: HYDROXYPROGESTERONE CAPROATE
     Indication: PREMATURE DELIVERY
     Dosage: 1 UNK, UNK
     Route: 065
     Dates: start: 20160229, end: 20160307
  3. PRENATAL VITAMINS [Concomitant]
     Active Substance: VITAMINS
     Dosage: 1 TABS,DAILY
     Dates: start: 20160111

REACTIONS (4)
  - Tinnitus [Unknown]
  - Hypersensitivity [Unknown]
  - Dizziness [Unknown]
  - Urticaria [Unknown]
